FAERS Safety Report 8558470 (Version 3)
Quarter: 2012Q4

REPORT INFORMATION
  Report Type: 
  Country: US (occurrence: US)
  Receive Date: 20120511
  Receipt Date: 20120907
  Transmission Date: 20130627
  Serious: Yes (Hospitalization)
  Sender: FDA-Public Use
  Company Number: US-BAYER-2012-045867

PATIENT
  Age: 38 Year
  Sex: Female
  Weight: 72.56 kg

DRUGS (9)
  1. YASMIN [Suspect]
     Indication: LEIOMYOMA
     Dosage: UNK
     Dates: start: 20070701, end: 200807
  2. YASMIN [Suspect]
     Indication: LEIOMYOMA
     Dosage: UNK
     Dates: start: 20070701, end: 200807
  3. OCELLA [Suspect]
     Indication: LEIOMYOMA
     Dosage: UNK
     Dates: start: 20080723, end: 20080820
  4. OCELLA [Suspect]
     Indication: LEIOMYOMA
     Dosage: UNK
     Dates: start: 20080723, end: 20080820
  5. NEXIUM [Concomitant]
  6. AMBIEN [Concomitant]
  7. HYDROCODONE [Concomitant]
  8. IBUPROFEN [Concomitant]
     Indication: PAIN
     Dosage: UNK
     Dates: start: 20080724
  9. KARIVA [Concomitant]
     Indication: LEIOMYOMA
     Dosage: UNK
     Dates: start: 20080827, end: 200810

REACTIONS (17)
  - Pulmonary embolism [Recovered/Resolved]
  - Deep vein thrombosis [Recovered/Resolved]
  - Renal vein thrombosis [None]
  - Pain [None]
  - Emotional distress [None]
  - Injury [None]
  - General physical health deterioration [None]
  - Anxiety [None]
  - Dyspnoea [Recovered/Resolved]
  - Chest pain [Recovered/Resolved]
  - Pain in extremity [Recovered/Resolved]
  - Hypoaesthesia [Recovered/Resolved]
  - Paraesthesia [Recovered/Resolved]
  - Pain in extremity [Recovered/Resolved]
  - Depression [None]
  - Insomnia [None]
  - Nervousness [None]
